FAERS Safety Report 8073240-0 (Version None)
Quarter: 2012Q1

REPORT INFORMATION
  Report Type: 
  Country: None (occurrence: None)
  Receive Date: 20120126
  Receipt Date: 20120119
  Transmission Date: 20120608
  Serious: Yes (Other)
  Sender: FDA-Public Use
  Company Number: PHHY2010FR092890

PATIENT
  Sex: Female
  Weight: 43 kg

DRUGS (2)
  1. ZOMETA [Suspect]
     Indication: METASTASES TO BONE
     Dosage: UNK
     Dates: start: 20051101, end: 20070901
  2. ZOMETA [Suspect]
     Dosage: 4 MG, EVERY 4 WEEKS

REACTIONS (1)
  - OSTEONECROSIS OF JAW [None]
